FAERS Safety Report 4396600-8 (Version None)
Quarter: 2004Q3

REPORT INFORMATION
  Report Type: 
  Country: None (occurrence: None)
  Receive Date: 20040713
  Receipt Date: 20040713
  Transmission Date: 20050211
  Serious: Yes (Hospitalization)
  Sender: FDA-Public Use
  Company Number: None

PATIENT
  Age: 81 Year
  Sex: Male
  Weight: 62.5964 kg

DRUGS (10)
  1. TRISENOX [Suspect]
     Indication: MYELODYSPLASTIC SYNDROME
     Dosage: 21.9 MG WEEKLY INTRAVENOUS
     Route: 042
     Dates: start: 20040426, end: 20040707
  2. INSULIN [Concomitant]
  3. PRANDIN [Concomitant]
  4. HYZAAR [Concomitant]
  5. LANOXIN [Concomitant]
  6. FOLIC ACID [Concomitant]
  7. B-6 [Concomitant]
  8. ALDACTONE [Concomitant]
  9. EPOGEN [Concomitant]
  10. SLO MAG [Concomitant]

REACTIONS (3)
  - CARDIOMEGALY [None]
  - HYPOXIA [None]
  - LYMPHOPENIA [None]
